FAERS Safety Report 8573440-7 (Version None)
Quarter: 2012Q3

REPORT INFORMATION
  Report Type: 
  Country: None (occurrence: None)
  Receive Date: 20120806
  Receipt Date: 20120726
  Transmission Date: 20120928
  Serious: No
  Sender: FDA-Public Use
  Company Number: US-PFIZER INC-2012152496

PATIENT
  Age: 37 Year
  Sex: Female
  Weight: 56.689 kg

DRUGS (4)
  1. PRISTIQ [Suspect]
     Indication: ANXIETY
  2. PRISTIQ [Suspect]
     Indication: DEPRESSION
     Dosage: 100 MG, 1X/DAY
     Route: 048
  3. FLONASE [Concomitant]
     Indication: HYPERSENSITIVITY
     Dosage: UNK
  4. TOPAMAX [Concomitant]
     Dosage: UNK

REACTIONS (11)
  - ANXIETY [None]
  - DIARRHOEA [None]
  - ABDOMINAL PAIN UPPER [None]
  - DRUG DOSE OMISSION [None]
  - NAUSEA [None]
  - VERTIGO [None]
  - DIZZINESS [None]
  - UNDERDOSE [None]
  - HEADACHE [None]
  - VOMITING [None]
  - DRUG WITHDRAWAL SYNDROME [None]
